FAERS Safety Report 6877083-2 (Version None)
Quarter: 2010Q3

REPORT INFORMATION
  Report Type: 
  Country: None (occurrence: None)
  Receive Date: 20100727
  Receipt Date: 20100727
  Transmission Date: 20110219
  Serious: Yes (Other)
  Sender: FDA-Public Use
  Company Number: None

PATIENT
  Sex: Male
  Weight: 88.4514 kg

DRUGS (3)
  1. ABILIFY [Suspect]
     Indication: BIPOLAR I DISORDER
     Dosage: 30MG NIGHTLY - PO
     Route: 048
     Dates: start: 20051001, end: 20100701
  2. LITHIUM [Concomitant]
  3. GABAPENTIN [Concomitant]

REACTIONS (2)
  - DRUG DEPENDENCE [None]
  - WEIGHT INCREASED [None]
